FAERS Safety Report 4749030-0 (Version None)
Quarter: 2005Q3

REPORT INFORMATION
  Report Type: 
  Country: None (occurrence: None)
  Receive Date: 20050812
  Receipt Date: 20050427
  Transmission Date: 20060218
  Serious: Yes (Hospitalization)
  Sender: FDA-Public Use
  Company Number: 393148

PATIENT
  Age: 54 Year
  Sex: Female
  Weight: 68 kg

DRUGS (5)
  1. PEGASYS [Suspect]
     Indication: HEPATITIS C
     Dosage: 180 MCG 1 PER 1 WEEK SUBCUTANEOUS
     Route: 058
     Dates: start: 20041105, end: 20050422
  2. COPEGUS [Suspect]
     Indication: HEPATITIS C
     Dosage: 1000 MG DAILY ORAL
     Route: 048
     Dates: start: 20041105, end: 20050422
  3. NEURONTIN [Concomitant]
  4. WELLBUTRIN (BUPROPION) [Concomitant]
  5. KLONOPIN [Concomitant]

REACTIONS (8)
  - ANAEMIA [None]
  - DEPRESSION [None]
  - DIZZINESS [None]
  - FATIGUE [None]
  - NEUTROPENIA [None]
  - PULMONARY EMBOLISM [None]
  - RASH [None]
  - WHITE BLOOD CELL COUNT DECREASED [None]
